FAERS Safety Report 20263254 (Version 1)
Quarter: 2021Q4

REPORT INFORMATION
  Report Type: Spontaneous
  Country: CA (occurrence: CA)
  Receive Date: 20211231
  Receipt Date: 20211231
  Transmission Date: 20220303
  Serious: Yes (Hospitalization)
  Sender: FDA-Public Use
  Company Number: CA-TEVA-2021-CA-1993522

PATIENT
  Age: 79 Year
  Sex: Male
  Weight: 74 kg

DRUGS (6)
  1. AMIODARONE [Suspect]
     Active Substance: AMIODARONE
     Indication: Atrial flutter
     Dosage: 100 MILLIGRAM DAILY;
     Route: 048
  2. AMIODARONE [Suspect]
     Active Substance: AMIODARONE
     Indication: Atrial fibrillation
     Dosage: 400 MILLIGRAM DAILY;
     Route: 048
  3. BISOPROLOL [Concomitant]
     Active Substance: BISOPROLOL
     Route: 065
  4. MIDODRINE [Concomitant]
     Active Substance: MIDODRINE
  5. RAPAFLO [Concomitant]
     Active Substance: SILODOSIN
  6. RIVAROXABAN [Concomitant]
     Active Substance: RIVAROXABAN
     Route: 065

REACTIONS (3)
  - Bronchial wall thickening [Unknown]
  - Interstitial lung disease [Unknown]
  - Lung opacity [Unknown]
